FAERS Safety Report 26144393 (Version 1)
Quarter: 2025Q4

REPORT INFORMATION
  Report Type: Spontaneous
  Country: EU (occurrence: EU)
  Receive Date: 20251211
  Receipt Date: 20251211
  Transmission Date: 20260118
  Serious: Yes (Hospitalization)
  Sender: TEVA
  Company Number: None

PATIENT
  Age: 73 Year
  Sex: Male

DRUGS (10)
  1. ENALAPRIL [Suspect]
     Active Substance: ENALAPRIL
     Indication: Hypertension
     Dosage: 2.5 MG C/24 H, ENALAPRIL (2142A)
     Route: 048
     Dates: start: 20221122, end: 20240425
  2. CHOLECALCIFEROL [Concomitant]
     Active Substance: CHOLECALCIFEROL
     Indication: Vitamin D deficiency
     Dosage: 25,000 IU/2.5 ML, 4 BOTTLES OF 2.5 ML
     Route: 048
     Dates: start: 20191009
  3. DUTASTERIDE\TAMSULOSIN HYDROCHLORIDE [Concomitant]
     Active Substance: DUTASTERIDE\TAMSULOSIN HYDROCHLORIDE
     Indication: Benign prostatic hyperplasia
     Dosage: 1.0 CAPS CE, DUTASTERIDE/TAMSULOSIN VIATRIS 0.5 MG/0.4 MG, EFG, 30 CAPSULES
     Route: 048
     Dates: start: 20230517
  4. ATROALDO [Concomitant]
     Indication: Bronchitis chronic
     Dosage: 40.0 MCG EVERY 6 HOURS, 20 MICROGRAMS/ACTUATION INHALATION SOLUTION IN PRESSURIZED CONTAINER, 1 I...
     Route: 065
     Dates: start: 20201026
  5. ATORVASTATIN [Concomitant]
     Active Substance: ATORVASTATIN
     Indication: Myocardial ischaemia
     Dosage: 40.0 MG CE, ATORVASTATIN NORMOGEN, EFG, 28 TABLETS
     Route: 048
     Dates: start: 20170816
  6. BISOPROLOL [Suspect]
     Active Substance: BISOPROLOL
     Indication: Atrial fibrillation
     Dosage: 2.5 MG C/24 H, BISOPROLOL (2328A)
     Route: 048
     Dates: start: 20190223, end: 20240425
  7. ELIQUIS [Concomitant]
     Active Substance: APIXABAN
     Indication: Atrial fibrillation
     Dosage: 5.0 MG C/12 H, 60 TABLETS
     Route: 048
     Dates: start: 20230728
  8. CELECREM [Concomitant]
     Indication: Dermatitis
     Dosage: 1.0 APPLIC C/24 H,1 TUBE OF 30 G
     Route: 061
     Dates: start: 20150514
  9. OLODATEROL HYDROCHLORIDE\TIOTROPIUM BROMIDE MONOHYDRATE [Concomitant]
     Active Substance: OLODATEROL HYDROCHLORIDE\TIOTROPIUM BROMIDE MONOHYDRATE
     Indication: Bronchitis chronic
     Dosage: 2.0 PUFF C/24 H, 2.5 MICROGRAMS/2.5 MICROGRAMS INHALATION SOLUTION, 1 REFILLABLE INHALER + 1 CART...
     Route: 065
     Dates: start: 20230819
  10. PANTOPRAZOLE NORMON [Concomitant]
     Indication: Colostomy
     Dosage: 20.0 MG DE, PANTOPRAZOLE NORMON 20 MG S EFG, 56 TABLETS (BLISTER)
     Route: 048
     Dates: start: 20220205

REACTIONS (2)
  - Bradycardia [Recovered/Resolved]
  - Hypotension [Recovered/Resolved]

NARRATIVE: CASE EVENT DATE: 20240425
